FAERS Safety Report 12133856 (Version 3)
Quarter: 2016Q1

REPORT INFORMATION
  Report Type: Report from Study
  Country: AU (occurrence: AU)
  Receive Date: 20160301
  Receipt Date: 20160314
  Transmission Date: 20160526
  Serious: Yes (Other)
  Sender: FDA-Public Use
  Company Number: AU-ABBVIE-16K-008-1567188-00

PATIENT
  Sex: Female
  Weight: 58.2 kg

DRUGS (2)
  1. HUMIRA [Suspect]
     Active Substance: ADALIMUMAB
     Indication: JUVENILE IDIOPATHIC ARTHRITIS
     Route: 058
     Dates: start: 20150609, end: 201602
  2. HUMIRA [Suspect]
     Active Substance: ADALIMUMAB
     Route: 058
     Dates: start: 20160220

REACTIONS (10)
  - Rash erythematous [Unknown]
  - Gait disturbance [Unknown]
  - Malaise [Unknown]
  - Photosensitivity reaction [Unknown]
  - Abdominal distension [Unknown]
  - Menorrhagia [Unknown]
  - Skin exfoliation [Unknown]
  - Headache [Unknown]
  - Nausea [Unknown]
  - Pain [Unknown]
